FAERS Safety Report 7974400-7 (Version None)
Quarter: 2011Q4

REPORT INFORMATION
  Report Type: 
  Country: None (occurrence: None)
  Receive Date: 20111213
  Receipt Date: 20111206
  Transmission Date: 20120403
  Serious: Yes (Hospitalization, Other)
  Sender: FDA-Public Use
  Company Number: US-BAYER-201041807NA

PATIENT
  Age: 34 Year
  Sex: Female
  Weight: 57.596 kg

DRUGS (22)
  1. ZOSYN [Concomitant]
     Dosage: 3.375 G, UNK
     Route: 042
  2. LASIX [Concomitant]
     Dosage: UNK
     Route: 042
     Dates: start: 20050107
  3. IMIPENEM [Concomitant]
     Dosage: 500 MG, QID
     Route: 042
     Dates: start: 20050110
  4. VANCOMYCIN [Concomitant]
     Dosage: 1 G, UNK
     Route: 042
     Dates: start: 20050113
  5. METHAMPHETAMINE HYDROCHLORIDE [Concomitant]
     Route: 042
  6. CONTRAST MEDIA [Concomitant]
     Indication: COMPUTERISED TOMOGRAM
     Dosage: UNK
     Dates: start: 20050107
  7. PREVACID [Concomitant]
     Dosage: 30 MG, QD
     Route: 048
     Dates: start: 20050108
  8. ERYTHROMYCIN [Concomitant]
  9. PLATELETS [Concomitant]
     Dosage: 8 U, UNK
     Route: 042
     Dates: start: 20050113
  10. SOLU-MEDROL [Concomitant]
     Dosage: 125 MG EVERY 6 HOURS
     Route: 042
  11. OXYCODONE AND ACETAMINOPHEN [Concomitant]
     Dosage: UNK
     Route: 048
     Dates: start: 20050108
  12. CEFTAZIDIME [Concomitant]
     Dosage: 2000 MG, TID
     Route: 042
     Dates: start: 20050109
  13. PAVULON [Concomitant]
     Dosage: UNK
     Route: 042
     Dates: start: 20050113, end: 20050113
  14. AMPICILLIN [Concomitant]
     Dosage: UNK
     Route: 042
     Dates: start: 20050113
  15. TRASYLOL [Suspect]
     Indication: CARDIAC PACEMAKER INSERTION
     Dosage: 1 ML, ONCE
     Route: 042
     Dates: start: 20050113, end: 20050113
  16. RED BLOOD CELLS [Concomitant]
     Dosage: 1 U, UNK
     Route: 042
     Dates: start: 20050113
  17. TRASYLOL [Suspect]
     Indication: TRICUSPID VALVE REPLACEMENT
     Dosage: 200 ML, LOADING DOSE
     Route: 042
     Dates: start: 20050113, end: 20050113
  18. TRASYLOL [Suspect]
     Dosage: 50CC/HR INFUSION
     Route: 042
     Dates: start: 20050113, end: 20050113
  19. MORPHINE [Concomitant]
     Dosage: UNK
     Route: 042
     Dates: start: 20050107
  20. CIPROFLOXACIN [Concomitant]
     Dosage: 750 MG, BID
     Route: 048
     Dates: start: 20050109
  21. GENTAMICIN [Concomitant]
     Dosage: 80 MG, BID
     Route: 042
  22. HEPARIN [Concomitant]

REACTIONS (10)
  - EMOTIONAL DISTRESS [None]
  - RENAL FAILURE [None]
  - ANXIETY [None]
  - UNEVALUABLE EVENT [None]
  - RENAL INJURY [None]
  - RENAL IMPAIRMENT [None]
  - STRESS [None]
  - FEAR [None]
  - PAIN [None]
  - INJURY [None]
